FAERS Safety Report 25633804 (Version 1)
Quarter: 2025Q3

REPORT INFORMATION
  Report Type: Spontaneous
  Country: US (occurrence: US)
  Receive Date: 20250801
  Receipt Date: 20250801
  Transmission Date: 20251020
  Serious: Yes (Other)
  Sender: PFIZER
  Company Number: US-PFIZER INC-PV202500091752

PATIENT
  Age: 78 Year
  Sex: Female

DRUGS (5)
  1. TRAZIMERA [Suspect]
     Active Substance: TRASTUZUMAB-QYYP
     Indication: Breast cancer female
     Dates: start: 20250113
  2. PERJETA [Concomitant]
     Active Substance: PERTUZUMAB
  3. SOLU-MEDROL [Concomitant]
     Active Substance: METHYLPREDNISOLONE SODIUM SUCCINATE
  4. DECADRON [Concomitant]
     Active Substance: DEXAMETHASONE
  5. TAXOL [Concomitant]
     Active Substance: PACLITAXEL

REACTIONS (11)
  - Pancreatitis acute [Unknown]
  - Hypersensitivity [Unknown]
  - Cough [Unknown]
  - Dyspnoea [Unknown]
  - Flushing [Unknown]
  - Paraesthesia [Unknown]
  - Weight decreased [Unknown]
  - Abdominal pain [Unknown]
  - Rash [Unknown]
  - White blood cell count increased [Unknown]
  - Diarrhoea [Unknown]

NARRATIVE: CASE EVENT DATE: 20250101
